FAERS Safety Report 18446179 (Version 2)
Quarter: 2020Q4

REPORT INFORMATION
  Report Type: Spontaneous
  Country: DE (occurrence: DE)
  Receive Date: 20201030
  Receipt Date: 20201106
  Transmission Date: 20210114
  Serious: Yes (Other)
  Sender: FDA-Public Use
  Company Number: DE-ASTRAZENECA-2020SE59748

PATIENT
  Sex: Female

DRUGS (2)
  1. IBUPROFEN. [Concomitant]
     Active Substance: IBUPROFEN
  2. LYNPARZA [Suspect]
     Active Substance: OLAPARIB
     Route: 048
     Dates: start: 202001

REACTIONS (8)
  - Arthralgia [Recovered/Resolved]
  - Pelvic inflammatory disease [Unknown]
  - Osteoporosis [Unknown]
  - Abdominal pain upper [Not Recovered/Not Resolved]
  - Pelvic pain [Unknown]
  - Bone marrow oedema [Recovering/Resolving]
  - Weight decreased [Unknown]
  - Hair growth abnormal [Unknown]

NARRATIVE: CASE EVENT DATE: 202005
